FAERS Safety Report 18812287 (Version 1)
Quarter: 2021Q1

REPORT INFORMATION
  Report Type: Spontaneous
  Country: US (occurrence: US)
  Receive Date: 20210129
  Receipt Date: 20210129
  Transmission Date: 20210419
  Serious: Yes (Death)
  Sender: FDA-Public Use
  Company Number: US-ROCHE-2759807

PATIENT
  Age: 53 Year
  Sex: Male

DRUGS (1)
  1. HEMLIBRA [Suspect]
     Active Substance: EMICIZUMAB-KXWH
     Indication: FACTOR VIII DEFICIENCY
     Dosage: 120 MG/0.8 ML
     Route: 058
     Dates: start: 20190107

REACTIONS (1)
  - Death [Fatal]

NARRATIVE: CASE EVENT DATE: 20210111
